FAERS Safety Report 9738969 (Version 1)
Quarter: 2013Q4

REPORT INFORMATION
  Report Type: Spontaneous
  Country: AU (occurrence: AU)
  Receive Date: 20131209
  Receipt Date: 20131209
  Transmission Date: 20140711
  Serious: Yes (Other)
  Sender: FDA-Public Use
  Company Number: PHHY2013AU142812

PATIENT
  Sex: 0

DRUGS (1)
  1. FEMARA [Suspect]
     Dosage: UNK UKN, UNK

REACTIONS (7)
  - Panic attack [Unknown]
  - Speech disorder [Unknown]
  - Sleep disorder [Unknown]
  - Thrombosis [Unknown]
  - Fatigue [Unknown]
  - Vision blurred [Unknown]
  - Dizziness [Unknown]
